FAERS Safety Report 18674614 (Version 1)
Quarter: 2020Q4

REPORT INFORMATION
  Report Type: Spontaneous
  Country: BE (occurrence: BE)
  Receive Date: 20201228
  Receipt Date: 20201228
  Transmission Date: 20210114
  Serious: Yes (Other)
  Sender: FDA-Public Use
  Company Number: BE-IPCA LABORATORIES LIMITED-IPC-2020-BE-003708

PATIENT

DRUGS (2)
  1. PROPRANOLOL [Suspect]
     Active Substance: PROPRANOLOL HYDROCHLORIDE
     Indication: INFANTILE HAEMANGIOMA
     Dosage: UNK UNK, QID
     Route: 061
  2. PROPRANOLOL [Suspect]
     Active Substance: PROPRANOLOL HYDROCHLORIDE
     Dosage: UNK UNK, BID
     Route: 061

REACTIONS (4)
  - Off label use [Unknown]
  - Application site macule [Recovered/Resolved]
  - Inappropriate schedule of product administration [Unknown]
  - Vasoconstriction [Recovered/Resolved]
